FAERS Safety Report 16261263 (Version 2)
Quarter: 2019Q2

REPORT INFORMATION
  Report Type: Spontaneous
  Country: US (occurrence: US)
  Receive Date: 20190501
  Receipt Date: 20190618
  Transmission Date: 20190711
  Serious: Yes (Hospitalization)
  Sender: FDA-Public Use
  Company Number: US-ACTELION-A-US2019-189887

PATIENT
  Age: 68 Year
  Sex: Male
  Weight: 54.42 kg

DRUGS (2)
  1. UPTRAVI [Suspect]
     Active Substance: SELEXIPAG
     Dosage: 1200 MCG, BID
     Route: 048
  2. UPTRAVI [Suspect]
     Active Substance: SELEXIPAG
     Indication: PULMONARY HYPERTENSION
     Dosage: 1400 MCG, QD
     Route: 048

REACTIONS (3)
  - Cardiac failure chronic [Unknown]
  - Condition aggravated [Unknown]
  - Weight decreased [Unknown]

NARRATIVE: CASE EVENT DATE: 201905
